FAERS Safety Report 10592817 (Version 1)
Quarter: 2014Q4

REPORT INFORMATION
  Report Type: Spontaneous
  Country: US (occurrence: None)
  Receive Date: 20141118
  Receipt Date: 20141118
  Transmission Date: 20150529
  Serious: No
  Sender: FDA-Public Use
  Company Number: None

PATIENT
  Age: 59 Year
  Sex: Male

DRUGS (1)
  1. HUMIRA [Suspect]
     Active Substance: ADALIMUMAB
     Indication: RHEUMATOID ARTHRITIS
     Dosage: 40 MG, Q14 DAYS, SQ
     Route: 058
     Dates: start: 201409

REACTIONS (6)
  - Impaired driving ability [None]
  - Dizziness [None]
  - Pain [None]
  - Retching [None]
  - Hypotension [None]
  - Disease progression [None]
